FAERS Safety Report 6456558-4 (Version None)
Quarter: 2009Q4

REPORT INFORMATION
  Report Type: 
  Country: None (occurrence: None)
  Receive Date: 20091124
  Receipt Date: 20091124
  Transmission Date: 20100525
  Serious: Yes (Hospitalization)
  Sender: FDA-Public Use
  Company Number: None

PATIENT
  Age: 55 Year
  Sex: Male

DRUGS (1)
  1. PIPERACILLIN AND TAZOBACTAM [Suspect]
     Indication: DIABETIC FOOT
     Dosage: 2.25 GM TID IV
     Route: 042
     Dates: start: 20091023, end: 20091106

REACTIONS (1)
  - RASH [None]
